FAERS Safety Report 7704396 (Version 3)
Quarter: 2012Q4

REPORT INFORMATION
  Report Type: 
  Country: JP (occurrence: JP)
  Receive Date: 20101213
  Receipt Date: 20121126
  Transmission Date: 20130627
  Serious: Yes (Hospitalization, Other)
  Sender: FDA-Public Use
  Company Number: PHHY2010JP82185

PATIENT
  Age: 37 Year
  Sex: Female

DRUGS (5)
  1. CLOZAPINE [Suspect]
     Indication: SCHIZOPHRENIA, DISORGANISED TYPE
     Dosage: 12.5 mg, UNK
     Route: 048
     Dates: start: 20100204
  2. CLOZAPINE [Suspect]
     Dosage: 600 mg, UNK
     Route: 048
     Dates: start: 20100318
  3. CLOZAPINE [Suspect]
     Dosage: 500 mg, UNK
     Route: 048
     Dates: start: 20100408
  4. CLOZAPINE [Suspect]
     Dosage: 400 mg, UNK
     Route: 048
     Dates: start: 20100422
  5. CLOZAPINE [Suspect]
     Dosage: 375 mg, UNK
     Route: 048

REACTIONS (5)
  - Road traffic accident [Unknown]
  - Compression fracture [Unknown]
  - Suicide attempt [Unknown]
  - Convulsion [Unknown]
  - Salivary hypersecretion [Unknown]
